FAERS Safety Report 8489366-3 (Version None)
Quarter: 2012Q2

REPORT INFORMATION
  Report Type: 
  Country: None (occurrence: None)
  Receive Date: 20120628
  Receipt Date: 20120628
  Transmission Date: 20120825
  Serious: Yes (Hospitalization)
  Sender: FDA-Public Use
  Company Number: None

PATIENT
  Age: 65 Year
  Sex: Female
  Weight: 65.7716 kg

DRUGS (1)
  1. CARVEDILOL [Suspect]
     Indication: HYPERTENSION
     Dates: start: 20120625, end: 20120625

REACTIONS (2)
  - HEART RATE INCREASED [None]
  - HEART RATE IRREGULAR [None]
